FAERS Safety Report 8096650-4 (Version None)
Quarter: 2012Q1

REPORT INFORMATION
  Report Type: 
  Country: None (occurrence: None)
  Receive Date: 20120129
  Receipt Date: 20111201
  Transmission Date: 20120608
  Serious: No
  Sender: FDA-Public Use
  Company Number: US-ABBOTT-11P-163-0880035-00

PATIENT
  Age: 68 Year
  Sex: Female

DRUGS (7)
  1. HUMIRA [Suspect]
     Indication: RHEUMATOID ARTHRITIS
     Dates: start: 20111117
  2. PLAQUENIL [Concomitant]
     Indication: ARTHRITIS
     Dosage: DAILY
  3. NASAL SPRAY [Concomitant]
     Indication: ASTHMA
  4. DULERA ORAL INHALATION [Concomitant]
     Indication: ASTHMA
     Dosage: DAILY
  5. RESTASIS [Concomitant]
     Indication: DRY EYE
     Dosage: EYE DROPS DAILY
  6. FOLIC ACID [Concomitant]
     Indication: VITAMIN SUPPLEMENTATION
     Dosage: DAILY
  7. VITAMIN D [Concomitant]
     Indication: VITAMIN SUPPLEMENTATION
     Dosage: DAILY

REACTIONS (2)
  - INJECTION SITE HAEMATOMA [None]
  - INJECTION SITE ERYTHEMA [None]
